FAERS Safety Report 5778378-6 (Version None)
Quarter: 2008Q2

REPORT INFORMATION
  Report Type: 
  Country: None (occurrence: None)
  Receive Date: 20080619
  Receipt Date: 20080610
  Transmission Date: 20081010
  Serious: Yes (Disabling)
  Sender: FDA-Public Use
  Company Number: US-BAYER-200825404NA

PATIENT
  Age: 36 Year
  Sex: Male

DRUGS (1)
  1. CIPRO [Suspect]
     Indication: URINARY TRACT INFECTION
     Route: 048

REACTIONS (8)
  - ARRHYTHMIA [None]
  - ARTHRALGIA [None]
  - CARPAL TUNNEL SYNDROME [None]
  - FATIGUE [None]
  - FIBROMYALGIA [None]
  - GASTROINTESTINAL DISORDER [None]
  - MULTIFOCAL MOTOR NEUROPATHY [None]
  - PAIN [None]
